FAERS Safety Report 6309324-4 (Version None)
Quarter: 2009Q3

REPORT INFORMATION
  Report Type: 
  Country: None (occurrence: None)
  Receive Date: 20090814
  Receipt Date: 20090810
  Transmission Date: 20100115
  Serious: Yes (Other)
  Sender: FDA-Public Use
  Company Number: CA-BAYER-200929178NA

PATIENT
  Age: 28 Year
  Sex: Female

DRUGS (1)
  1. MIRENA [Suspect]
     Indication: DRUG USE FOR UNKNOWN INDICATION
     Dosage: CONTINUOUS
     Route: 015
     Dates: start: 20090804

REACTIONS (5)
  - ABDOMINAL PAIN LOWER [None]
  - BURNING SENSATION [None]
  - DRUG HYPERSENSITIVITY [None]
  - MENORRHAGIA [None]
  - PYREXIA [None]
